FAERS Safety Report 8818885 (Version 3)
Quarter: 2012Q4

REPORT INFORMATION
  Report Type: 
  Country: JP (occurrence: JP)
  Receive Date: 20121001
  Receipt Date: 20121126
  Transmission Date: 20130627
  Serious: No
  Sender: FDA-Public Use
  Company Number: JP-JNJFOC-20120913123

PATIENT
  Age: 89 Year
  Sex: Female

DRUGS (9)
  1. TRAMCET [Suspect]
     Indication: PAIN
     Dosage: 1 per day
     Route: 048
  2. TRAMCET [Suspect]
     Indication: PAIN
     Dosage: 1 per day
     Route: 048
     Dates: start: 20120913
  3. CALONAL [Suspect]
     Indication: PRODUCT USED FOR UNKNOWN INDICATION
     Route: 048
  4. WARFARIN [Interacting]
     Indication: PRODUCT USED FOR UNKNOWN INDICATION
     Dosage: 1 per day
     Route: 048
     Dates: start: 200812
  5. ARTIST [Concomitant]
     Route: 048
  6. MEXITIL [Concomitant]
     Route: 065
  7. MAGMITT [Concomitant]
     Route: 048
  8. TAKEPRON [Concomitant]
     Route: 065
  9. ZYLORIC [Concomitant]
     Route: 048

REACTIONS (2)
  - International normalised ratio increased [Recovering/Resolving]
  - Drug interaction [Unknown]
